FAERS Safety Report 21933134 (Version 2)
Quarter: 2023Q1

REPORT INFORMATION
  Report Type: Spontaneous
  Country: US (occurrence: US)
  Receive Date: 20230131
  Receipt Date: 20230221
  Transmission Date: 20230418
  Serious: No
  Sender: FDA-Public Use
  Company Number: US-GILEAD-2023-0614879

PATIENT
  Age: 59 Year
  Sex: Male
  Weight: 185 kg

DRUGS (3)
  1. DESCOVY [Suspect]
     Active Substance: EMTRICITABINE\TENOFOVIR ALAFENAMIDE FUMARATE
     Indication: Prophylaxis against HIV infection
     Dosage: 200/25 MG
     Route: 048
     Dates: start: 20220421
  2. ALPRAZOLAM [Concomitant]
     Active Substance: ALPRAZOLAM
     Indication: Anxiety
     Dosage: 0.5 MG
     Route: 048
     Dates: start: 20220927
  3. ROSUVASTATIN [Concomitant]
     Active Substance: ROSUVASTATIN
     Dosage: UNK
     Dates: start: 20210628

REACTIONS (1)
  - Blood creatinine increased [Recovered/Resolved]
